FAERS Safety Report 23443859 (Version 1)
Quarter: 2024Q1

REPORT INFORMATION
  Report Type: Spontaneous
  Country: US (occurrence: None)
  Receive Date: 20240124
  Receipt Date: 20240124
  Transmission Date: 20240410
  Serious: Yes (Hospitalization)
  Sender: FDA-Public Use
  Company Number: None

PATIENT
  Age: 58 Year
  Sex: Female
  Weight: 97.6 kg

DRUGS (2)
  1. TIRZEPATIDE [Suspect]
     Active Substance: TIRZEPATIDE
     Indication: Diabetes mellitus
     Dosage: OTHER FREQUENCY : WEEKLY;?
     Route: 058
     Dates: start: 20240108, end: 20240121
  2. TIRZEPATIDE [Suspect]
     Active Substance: TIRZEPATIDE
     Indication: Weight decreased

REACTIONS (8)
  - Renal impairment [None]
  - Mental status changes [None]
  - Hypovolaemia [None]
  - Lethargy [None]
  - Decreased appetite [None]
  - Weight decreased [None]
  - Fluid replacement [None]
  - Wernicke^s encephalopathy [None]

NARRATIVE: CASE EVENT DATE: 20240121
